FAERS Safety Report 16995993 (Version 1)
Quarter: 2019Q4

REPORT INFORMATION
  Report Type: Spontaneous
  Country: CA (occurrence: CA)
  Receive Date: 20191105
  Receipt Date: 20191105
  Transmission Date: 20200122
  Serious: Yes (Other)
  Sender: FDA-Public Use
  Company Number: CA-ALLERGAN-1944376US

PATIENT
  Sex: Female

DRUGS (3)
  1. OCALIVA [Suspect]
     Active Substance: OBETICHOLIC ACID
     Indication: PRIMARY BILIARY CHOLANGITIS
     Dosage: 5 MG, Q WEEK
     Route: 048
     Dates: start: 2019
  2. OCALIVA [Suspect]
     Active Substance: OBETICHOLIC ACID
     Dosage: 5 MG, QD
     Route: 048
     Dates: start: 20190726, end: 20190809
  3. URSO [Suspect]
     Active Substance: URSODIOL
     Indication: PRODUCT USED FOR UNKNOWN INDICATION
     Route: 065

REACTIONS (16)
  - Migraine [Recovered/Resolved]
  - Malaise [Recovered/Resolved]
  - Arthralgia [Unknown]
  - Paraesthesia [Recovered/Resolved]
  - Fatigue [Recovered/Resolved]
  - Headache [Recovered/Resolved]
  - Nausea [Recovered/Resolved]
  - Agitation [Recovered/Resolved]
  - Vomiting [Recovered/Resolved]
  - Flushing [Recovered/Resolved]
  - Feeling hot [Recovered/Resolved]
  - Pain in extremity [Recovered/Resolved]
  - Hypoaesthesia [Recovered/Resolved]
  - Abdominal pain upper [Recovered/Resolved]
  - Cataract [Not Recovered/Not Resolved]
  - Asthenia [Recovered/Resolved]
